FAERS Safety Report 15061238 (Version 1)
Quarter: 2018Q2

REPORT INFORMATION
  Report Type: Spontaneous
  Country: US (occurrence: US)
  Receive Date: 20180625
  Receipt Date: 20180625
  Transmission Date: 20180711
  Serious: No
  Sender: FDA-Public Use
  Company Number: US-ROCHE-2092875

PATIENT
  Age: 92 Year
  Sex: Female

DRUGS (1)
  1. XELODA [Suspect]
     Active Substance: CAPECITABINE
     Indication: TRIPLE NEGATIVE BREAST CANCER
     Route: 065
     Dates: start: 20180307

REACTIONS (5)
  - Chapped lips [Not Recovered/Not Resolved]
  - Lip pain [Not Recovered/Not Resolved]
  - Lip discolouration [Not Recovered/Not Resolved]
  - Oral discomfort [Not Recovered/Not Resolved]
  - Oral disorder [Not Recovered/Not Resolved]

NARRATIVE: CASE EVENT DATE: 20180311
